FAERS Safety Report 9663392 (Version 2)
Quarter: 2013Q4

REPORT INFORMATION
  Report Type: Report from Study
  Country: US (occurrence: US)
  Receive Date: 20131101
  Receipt Date: 20131112
  Transmission Date: 20140711
  Serious: Yes (Death)
  Sender: FDA-Public Use
  Company Number: US-ROCHE-1297386

PATIENT
  Age: 55 Year
  Sex: Female
  Weight: 40.41 kg

DRUGS (3)
  1. AVASTIN [Suspect]
     Indication: LUNG NEOPLASM MALIGNANT
     Route: 042
     Dates: start: 20130826, end: 20130916
  2. CARBOPLATIN [Concomitant]
     Indication: LUNG NEOPLASM MALIGNANT
     Route: 042
     Dates: start: 20130826, end: 20130916
  3. TAXOL [Concomitant]
     Indication: LUNG NEOPLASM MALIGNANT
     Route: 042
     Dates: start: 20130826, end: 20130916

REACTIONS (4)
  - Bronchial carcinoma [Fatal]
  - Headache [Unknown]
  - Back pain [Unknown]
  - Muscle tightness [Unknown]
